FAERS Safety Report 10557963 (Version 1)
Quarter: 2014Q4

REPORT INFORMATION
  Report Type: Spontaneous
  Country: FR (occurrence: None)
  Receive Date: 20141029
  Receipt Date: 20141029
  Transmission Date: 20150529
  Serious: Yes (Hospitalization, Other)
  Sender: FDA-Public Use
  Company Number: FK201404410

PATIENT
  Age: 45 Year
  Sex: Female

DRUGS (2)
  1. CEFTRIAXON [Suspect]
     Active Substance: CEFTRIAXONE
     Indication: ESCHERICHIA INFECTION
  2. GENTAMICIN. [Suspect]
     Active Substance: GENTAMICIN
     Indication: ESCHERICHIA INFECTION

REACTIONS (7)
  - Nausea [None]
  - Candida infection [None]
  - Device occlusion [None]
  - Acute kidney injury [None]
  - Abdominal pain [None]
  - Pyrexia [None]
  - Pyuria [None]
